FAERS Safety Report 7365835-4 (Version None)
Quarter: 2011Q1

REPORT INFORMATION
  Report Type: 
  Country: None (occurrence: None)
  Receive Date: 20110316
  Receipt Date: 20110316
  Transmission Date: 20110831
  Serious: Yes (Other)
  Sender: FDA-Public Use
  Company Number: None

PATIENT
  Age: 6 Year
  Sex: Female
  Weight: 20.8655 kg

DRUGS (1)
  1. TAMIFLU [Suspect]
     Indication: EXPOSURE TO COMMUNICABLE DISEASE
     Dosage: 2.5 MLS ONE TIME PER DAY PO
     Route: 048
     Dates: start: 20110301, end: 20110308

REACTIONS (1)
  - HALLUCINATIONS, MIXED [None]
